FAERS Safety Report 20127984 (Version 1)
Quarter: 2021Q4

REPORT INFORMATION
  Report Type: Spontaneous
  Country: US (occurrence: None)
  Receive Date: 20211129
  Receipt Date: 20211129
  Transmission Date: 20220303
  Serious: No
  Sender: FDA-Public Use
  Company Number: US-ROCHE-2713534

PATIENT
  Sex: Female
  Weight: 59.020 kg

DRUGS (11)
  1. HERCEPTIN [Suspect]
     Active Substance: TRASTUZUMAB
     Indication: Breast cancer stage III
     Route: 041
     Dates: start: 201903, end: 20190701
  2. PERJETA [Suspect]
     Active Substance: PERTUZUMAB
     Indication: Breast cancer stage III
     Route: 042
     Dates: start: 201903, end: 20190701
  3. KADCYLA [Suspect]
     Active Substance: ADO-TRASTUZUMAB EMTANSINE
     Indication: Breast cancer stage III
     Route: 042
     Dates: start: 201909, end: 202004
  4. ARIMIDEX [Suspect]
     Active Substance: ANASTROZOLE
     Indication: Breast cancer stage III
     Route: 040
     Dates: start: 202001, end: 202002
  5. TAXOTERE [Concomitant]
     Active Substance: DOCETAXEL
     Indication: Breast cancer stage III
     Route: 042
     Dates: start: 201903, end: 20190701
  6. NEULASTA [Concomitant]
     Active Substance: PEGFILGRASTIM
     Indication: White blood cell count
     Dates: start: 201903, end: 20190701
  7. CARBOPLATIN [Concomitant]
     Active Substance: CARBOPLATIN
     Indication: Breast cancer stage III
     Route: 042
     Dates: start: 201903, end: 20190701
  8. EXEMESTANE [Concomitant]
     Active Substance: EXEMESTANE
     Indication: Breast cancer stage III
  9. DEXAMETHASONE [Concomitant]
     Active Substance: DEXAMETHASONE
  10. ZOFRAN [Concomitant]
     Active Substance: ONDANSETRON HYDROCHLORIDE
     Dates: start: 20190101
  11. SINGULAIR [Concomitant]
     Active Substance: MONTELUKAST SODIUM
     Indication: Bronchial hyperreactivity
     Route: 048

REACTIONS (5)
  - Vanishing bile duct syndrome [Unknown]
  - Fatigue [Recovering/Resolving]
  - Myalgia [Unknown]
  - Arthralgia [Not Recovered/Not Resolved]
  - Mood swings [Unknown]
